FAERS Safety Report 8208300-4 (Version None)
Quarter: 2012Q1

REPORT INFORMATION
  Report Type: 
  Country: None (occurrence: None)
  Receive Date: 20120314
  Receipt Date: 20120313
  Transmission Date: 20120608
  Serious: Yes (Death, Hospitalization)
  Sender: FDA-Public Use
  Company Number: PHHY2011CR65379

PATIENT
  Age: 82 Year
  Sex: Female

DRUGS (6)
  1. SEROLUX [Concomitant]
  2. ENZYPRIDE [Concomitant]
  3. VASTAREL [Concomitant]
  4. DIOVAN [Suspect]
     Indication: HYPERTENSION
     Dosage: 160 MG, DAILY
     Route: 048
  5. NEXIUM [Concomitant]
  6. LORAZEPAM [Concomitant]

REACTIONS (2)
  - APPENDICITIS PERFORATED [None]
  - DEATH [None]
